FAERS Safety Report 8212769-9 (Version None)
Quarter: 2012Q1

REPORT INFORMATION
  Report Type: 
  Country: None (occurrence: None)
  Receive Date: 20120315
  Receipt Date: 20120313
  Transmission Date: 20120608
  Serious: Yes (Death)
  Sender: FDA-Public Use
  Company Number: US-BRISTOL-MYERS SQUIBB COMPANY-16419970

PATIENT
  Age: 68 Year
  Sex: Male

DRUGS (1)
  1. BARACLUDE [Suspect]
     Indication: HEPATITIS B
     Dosage: STARTED WITH 0.5MG ON 30APR2007, INCREASED TO 1MG IN OCT2009.
     Route: 048
     Dates: start: 20070430

REACTIONS (1)
  - DEATH [None]
